FAERS Safety Report 21555603 (Version 1)
Quarter: 2022Q4

REPORT INFORMATION
  Report Type: Spontaneous
  Country: US (occurrence: None)
  Receive Date: 20221103
  Receipt Date: 20221103
  Transmission Date: 20230113
  Serious: Yes (Other)
  Sender: FDA-Public Use
  Company Number: None

PATIENT
  Age: 71 Year
  Sex: Male
  Weight: 135 kg

DRUGS (17)
  1. FOSPHENYTOIN [Suspect]
     Active Substance: FOSPHENYTOIN
     Indication: Seizure
     Dates: end: 20220909
  2. LEVETIRACETAM [Concomitant]
     Active Substance: LEVETIRACETAM
     Dates: start: 20220908, end: 20220911
  3. ASPIRIN [Concomitant]
     Active Substance: ASPIRIN
     Dates: start: 20220830, end: 20220911
  4. CLOPIDOGREL [Concomitant]
     Active Substance: CLOPIDOGREL BISULFATE
     Dates: start: 20220901
  5. DOCUSATE [Concomitant]
     Active Substance: DOCUSATE
     Dates: start: 20220901
  6. Docusate senna [Concomitant]
     Dates: start: 20220902
  7. FERROUS SULFATE [Concomitant]
     Active Substance: FERROUS SULFATE
  8. FUROSEMIDE [Concomitant]
     Active Substance: FUROSEMIDE
     Dates: start: 20220906
  9. HEPARIN [Concomitant]
     Active Substance: HEPARIN SODIUM
     Dates: start: 20220903
  10. INSULIN GLARGINE [Concomitant]
     Active Substance: INSULIN GLARGINE
     Dates: start: 20220904
  11. INSULIN LISPRO [Concomitant]
     Active Substance: INSULIN LISPRO
  12. MAGNESIUM OXIDE [Concomitant]
     Active Substance: MAGNESIUM OXIDE
     Dates: start: 20220901
  13. METOPROLOL [Concomitant]
     Active Substance: METOPROLOL
     Dates: start: 20220901
  14. MVI with minerals [Concomitant]
     Dates: start: 20220904
  15. PANTOPRAZOLE [Concomitant]
     Active Substance: PANTOPRAZOLE
     Dates: start: 20220903
  16. POTASSIUM BICARBONATE [Concomitant]
     Active Substance: POTASSIUM BICARBONATE
     Dates: start: 20220906
  17. SACCHAROMYCES [Concomitant]
     Active Substance: SACCHAROMYCES CEREVISIAE
     Dates: start: 20220901

REACTIONS (3)
  - Pulseless electrical activity [None]
  - Bradycardia [None]
  - Infusion related reaction [None]

NARRATIVE: CASE EVENT DATE: 20220909
